FAERS Safety Report 13988896 (Version 1)
Quarter: 2017Q3

REPORT INFORMATION
  Report Type: Spontaneous
  Country: US (occurrence: US)
  Receive Date: 20170919
  Receipt Date: 20170919
  Transmission Date: 20171128
  Serious: Yes (Disabling, Other)
  Sender: FDA-Public Use
  Company Number: None

PATIENT
  Age: 63 Year
  Sex: Female
  Weight: 71.55 kg

DRUGS (6)
  1. HARVONI [Suspect]
     Active Substance: LEDIPASVIR\SOFOSBUVIR
     Indication: HEPATITIS C
     Route: 048
  2. VALIUM [Concomitant]
     Active Substance: DIAZEPAM
  3. LISINOPRIL. [Concomitant]
     Active Substance: LISINOPRIL
  4. DEMEROL [Concomitant]
     Active Substance: MEPERIDINE HYDROCHLORIDE
  5. VITAMIN B12 [Concomitant]
     Active Substance: CYANOCOBALAMIN
  6. MAGNESIUM MONOMAGNESIUM MALATE [Concomitant]

REACTIONS (8)
  - Dysphagia [None]
  - Headache [None]
  - Tinnitus [None]
  - Musculoskeletal pain [None]
  - Hypoaesthesia [None]
  - Bedridden [None]
  - Dyspepsia [None]
  - Muscle spasms [None]

NARRATIVE: CASE EVENT DATE: 20160528
